FAERS Safety Report 13178212 (Version 1)
Quarter: 2017Q1

REPORT INFORMATION
  Report Type: Spontaneous
  Country: US (occurrence: US)
  Receive Date: 20170201
  Receipt Date: 20170201
  Transmission Date: 20170428
  Serious: No
  Sender: FDA-Public Use
  Company Number: None

PATIENT
  Age: 40 Year
  Sex: Female

DRUGS (1)
  1. SIMPONI [Suspect]
     Active Substance: GOLIMUMAB

REACTIONS (6)
  - Rash erythematous [None]
  - Trichorrhexis [None]
  - Nausea [None]
  - Injection site reaction [None]
  - Injection site bruising [None]
  - Hair disorder [None]

NARRATIVE: CASE EVENT DATE: 20160831
